FAERS Safety Report 11713999 (Version 1)
Quarter: 2015Q4

REPORT INFORMATION
  Report Type: Spontaneous
  Country: EE (occurrence: EE)
  Receive Date: 20151109
  Receipt Date: 20151109
  Transmission Date: 20160304
  Serious: Yes (Other)
  Sender: FDA-Public Use
  Company Number: EE-TEVA-607172ISR

PATIENT
  Age: 0 Day

DRUGS (1)
  1. AMOXICILLIN-RATIOPHARM TS [Suspect]
     Active Substance: AMOXICILLIN
     Dosage: 1500 MILLIGRAM DAILY;
     Route: 064

REACTIONS (5)
  - Amniocentesis abnormal [Recovered/Resolved]
  - Heart rate abnormal [Recovered/Resolved]
  - Foetal exposure during pregnancy [Unknown]
  - Maternal drugs affecting foetus [None]
  - Caesarean section [None]

NARRATIVE: CASE EVENT DATE: 20150918
